FAERS Safety Report 8168621-0 (Version None)
Quarter: 2012Q1

REPORT INFORMATION
  Report Type: 
  Country: None (occurrence: None)
  Receive Date: 20120227
  Receipt Date: 20120221
  Transmission Date: 20120608
  Serious: Yes (Other)
  Sender: FDA-Public Use
  Company Number: US-BAYER-2012-018554

PATIENT
  Age: 43 Year
  Sex: Male

DRUGS (5)
  1. TRASYLOL [Suspect]
     Indication: MITRAL VALVE REPLACEMENT
     Dosage: 2 MILLION UNITS
     Route: 042
     Dates: start: 20030904
  2. INSULIN [Concomitant]
     Dosage: UNK
     Dates: start: 20030904, end: 20030904
  3. DEXTROSE [Concomitant]
     Dosage: UNK
     Dates: start: 20030904, end: 20030904
  4. HEPARIN [Concomitant]
     Dosage: UNK
     Dates: start: 20030904, end: 20030904
  5. CARDIOPLEGIA [Concomitant]
     Dosage: UNK
     Dates: start: 20030904, end: 20030904

REACTIONS (1)
  - RENAL FAILURE ACUTE [None]
